FAERS Safety Report 18506453 (Version 1)
Quarter: 2020Q4

REPORT INFORMATION
  Report Type: Spontaneous
  Country: US (occurrence: US)
  Receive Date: 20201114
  Receipt Date: 20201114
  Transmission Date: 20210114
  Serious: No
  Sender: FDA-Public Use
  Company Number: None

PATIENT
  Age: 36 Year
  Sex: Male

DRUGS (2)
  1. ALARIS MODULE [Suspect]
     Active Substance: DEVICE
  2. LEVOPHED [Suspect]
     Active Substance: NOREPINEPHRINE BITARTRATE

REACTIONS (3)
  - Device malfunction [None]
  - Blood pressure abnormal [None]
  - Device alarm issue [None]

NARRATIVE: CASE EVENT DATE: 20201114
